FAERS Safety Report 14543047 (Version 1)
Quarter: 2018Q1

REPORT INFORMATION
  Report Type: Spontaneous
  Country: US (occurrence: US)
  Receive Date: 20180216
  Receipt Date: 20180216
  Transmission Date: 20180509
  Serious: Yes (Other)
  Sender: FDA-Public Use
  Company Number: US-ALLERGAN-1772856US

PATIENT
  Age: 76 Year
  Sex: Female

DRUGS (1)
  1. REFRESH TEARS [Suspect]
     Active Substance: CARBOXYMETHYLCELLULOSE SODIUM
     Indication: DRY EYE
     Dosage: UNK
     Route: 047
     Dates: start: 2015

REACTIONS (4)
  - Colon cancer [Not Recovered/Not Resolved]
  - Eye discharge [Recovered/Resolved]
  - Drug ineffective [Unknown]
  - Eye disorder [Recovered/Resolved]
